FAERS Safety Report 10761930 (Version 1)
Quarter: 2015Q1

REPORT INFORMATION
  Report Type: Spontaneous
  Country: US (occurrence: None)
  Receive Date: 20150129
  Receipt Date: 20150129
  Transmission Date: 20150721
  Serious: Yes (Other)
  Sender: FDA-Public Use
  Company Number: 2014016445

PATIENT
  Age: 16 Year
  Sex: Male

DRUGS (1)
  1. KEPPRA [Suspect]
     Active Substance: LEVETIRACETAM
     Indication: JUVENILE MYOCLONIC EPILEPSY
     Dosage: (500 MG STRENGTH) 500 MG, 2X/DAY (BID)
     Dates: start: 20140926, end: 2014

REACTIONS (3)
  - Generalised tonic-clonic seizure [None]
  - Fatigue [None]
  - Abnormal behaviour [None]

NARRATIVE: CASE EVENT DATE: 20141009
